FAERS Safety Report 10496510 (Version 3)
Quarter: 2014Q4

REPORT INFORMATION
  Report Type: Spontaneous
  Country: US (occurrence: US)
  Receive Date: 20141004
  Receipt Date: 20141114
  Transmission Date: 20150528
  Serious: Yes (Other)
  Sender: FDA-Public Use
  Company Number: US-009507513-1409USA007380

PATIENT
  Age: 20 Year
  Sex: Female
  Weight: 95.69 kg

DRUGS (1)
  1. NEXPLANON [Suspect]
     Active Substance: ETONOGESTREL
     Indication: CONTRACEPTION
     Dosage: UNK
     Route: 023
     Dates: start: 20130207, end: 20140820

REACTIONS (2)
  - Device kink [Recovered/Resolved]
  - Incorrect route of drug administration [Unknown]

NARRATIVE: CASE EVENT DATE: 20130207
